FAERS Safety Report 16989179 (Version 1)
Quarter: 2019Q4

REPORT INFORMATION
  Report Type: Spontaneous
  Country: US (occurrence: US)
  Receive Date: 20190919
  Receipt Date: 20190919
  Transmission Date: 20200122
  Serious: No
  Sender: FDA-Public Use
  Company Number: None

PATIENT
  Age: 79 Year
  Sex: Female

DRUGS (1)
  1. CAPECITABINE TAB 500MG [Suspect]
     Active Substance: CAPECITABINE
     Dosage: ?          OTHER DOSE:3 TABLETS;?
     Route: 048
     Dates: start: 201908

REACTIONS (5)
  - Blood potassium decreased [None]
  - Malaise [None]
  - Surgery [None]
  - Diarrhoea [None]
  - Blood magnesium decreased [None]

NARRATIVE: CASE EVENT DATE: 20190919
